FAERS Safety Report 4433801-4 (Version None)
Quarter: 2004Q3

REPORT INFORMATION
  Report Type: 
  Country: None (occurrence: None)
  Receive Date: 20040824
  Receipt Date: 20040824
  Transmission Date: 20050211
  Serious: Yes (Life-Threatening, Hospitalization)
  Sender: FDA-Public Use
  Company Number: None

PATIENT
  Age: 76 Year
  Sex: Female
  Weight: 63.5036 kg

DRUGS (2)
  1. DIFLUNISAL [Suspect]
     Indication: BACK PAIN
     Dosage: 50MG  1/DAY  ORAL
     Route: 048
     Dates: start: 20040611, end: 20040625
  2. NORTRIPTYLINE HCL [Suspect]
     Indication: BACK PAIN
     Dosage: 10MG  2/DAY  ORAL
     Route: 048
     Dates: start: 20040611, end: 20040625

REACTIONS (3)
  - PLATELET COUNT DECREASED [None]
  - SKIN DISCOLOURATION [None]
  - TONGUE HAEMORRHAGE [None]
